FAERS Safety Report 8403048-5 (Version None)
Quarter: 2012Q2

REPORT INFORMATION
  Report Type: 
  Country: None (occurrence: None)
  Receive Date: 20120601
  Receipt Date: 20120523
  Transmission Date: 20120825
  Serious: Yes (Hospitalization)
  Sender: FDA-Public Use
  Company Number: US-ELI_LILLY_AND_COMPANY-US201205008994

PATIENT
  Sex: Female

DRUGS (2)
  1. HUMULIN N [Suspect]
     Indication: DIABETES MELLITUS
  2. HUMALOG [Suspect]
     Indication: DIABETES MELLITUS
     Dosage: 8 U, UNK

REACTIONS (6)
  - MATERNAL EXPOSURE DURING PREGNANCY [None]
  - NEUROPATHY PERIPHERAL [None]
  - MOVEMENT DISORDER [None]
  - MEMORY IMPAIRMENT [None]
  - HOSPITALISATION [None]
  - BLOOD TEST ABNORMAL [None]
